FAERS Safety Report 9211171 (Version 3)
Quarter: 2013Q2

REPORT INFORMATION
  Report Type: Other
  Country: GB (occurrence: GB)
  Receive Date: 20130404
  Receipt Date: 20130626
  Transmission Date: 20140414
  Serious: Yes (Other)
  Sender: FDA-Public Use
  Company Number: GB-WATSON-2013-05714

PATIENT
  Age: 73 Year
  Sex: Male

DRUGS (8)
  1. ALENDRONATE SODIUM- (UNKNOWN) [Suspect]
     Indication: PRODUCT USED FOR UNKNOWN INDICATION
     Dosage: 70 MG, 1/WEEK
     Route: 065
     Dates: start: 200803
  2. QUESTRAN [Suspect]
     Indication: PRODUCT USED FOR UNKNOWN INDICATION
     Dosage: UNK
     Route: 048
     Dates: start: 1990, end: 201005
  3. QUESTRAN [Suspect]
     Dosage: 1 DF QID. MAY2010: 4G POWDER ONE SACHET 4 TIMES A DAY.
     Route: 048
     Dates: start: 20100505
  4. ADCAL D3 [Suspect]
     Indication: PRODUCT USED FOR UNKNOWN INDICATION
     Dosage: 1DF DOSAGE FORM TWICE A DAY. 1DF: TWO TABLETS DAILY
     Route: 065
     Dates: start: 200803
  5. VITAMIN B12                        /06860901/ [Concomitant]
     Indication: PRODUCT USED FOR UNKNOWN INDICATION
     Dosage: INJECTION
     Route: 065
  6. BENDROFLUMETHIAZIDE [Concomitant]
     Indication: PRODUCT USED FOR UNKNOWN INDICATION
     Dosage: 2.5 MG, DAILY. TABS
     Route: 065
  7. CODEINE [Concomitant]
     Indication: PRODUCT USED FOR UNKNOWN INDICATION
     Dosage: 30 MG, UNKNOWN. TABS 4/D. DRUG INTERVAL DOSAGE DEFINITION = AS NECESSARY
     Route: 065
  8. COLOFAC                            /00139402/ [Concomitant]
     Indication: GASTROINTESTINAL PAIN
     Dosage: 135 MG, TID. TABS
     Route: 065

REACTIONS (4)
  - Nephrolithiasis [Unknown]
  - Osteoporosis [Not Recovered/Not Resolved]
  - Drug interaction [Unknown]
  - Hypertension [Unknown]
